FAERS Safety Report 4262939-X (Version None)
Quarter: 2004Q1

REPORT INFORMATION
  Report Type: 
  Country: None (occurrence: None)
  Receive Date: 20040105
  Receipt Date: 20031215
  Transmission Date: 20041129
  Serious: Yes (Life-Threatening, Hospitalization)
  Sender: FDA-Public Use
  Company Number: 200320509US

PATIENT
  Sex: Male

DRUGS (3)
  1. ARAVA [Suspect]
     Indication: RHEUMATOID ARTHRITIS
     Route: 048
     Dates: start: 20010201, end: 20031212
  2. INFLIXIMAB [Suspect]
     Dosage: DOSE: 300 EVERY 6-8 WEEKS
     Route: 042
     Dates: start: 20010201, end: 20031212
  3. PLAQUENIL [Concomitant]
     Dosage: DOSE: UNK

REACTIONS (2)
  - ACUTE MYELOMONOCYTIC LEUKAEMIA [None]
  - PLATELET COUNT DECREASED [None]
